FAERS Safety Report 6250021-1 (Version None)
Quarter: 2009Q2

REPORT INFORMATION
  Report Type: 
  Country: None (occurrence: None)
  Receive Date: 20090629
  Receipt Date: 20090618
  Transmission Date: 20091009
  Serious: Yes (Other)
  Sender: FDA-Public Use
  Company Number: PHHY2009MX24624

PATIENT
  Age: 71 Year
  Sex: Female

DRUGS (1)
  1. STALEVO 100 [Suspect]
     Indication: PARKINSON'S DISEASE
     Dosage: 2 TABLETS PER DAY
     Route: 048
     Dates: start: 20060601

REACTIONS (2)
  - FALL [None]
  - JOINT DISLOCATION [None]
